FAERS Safety Report 8792795 (Version 2)
Quarter: 2016Q1

REPORT INFORMATION
  Report Type: Spontaneous
  Country: JP (occurrence: JP)
  Receive Date: 20120918
  Receipt Date: 20160112
  Transmission Date: 20160526
  Serious: Yes (Hospitalization, Other)
  Sender: FDA-Public Use
  Company Number: JP-GLAXOSMITHKLINE-B0830565A

PATIENT
  Age: 29 Year
  Sex: Female

DRUGS (3)
  1. FLUTICASONE PROPIONATE (DISKUS) [Suspect]
     Active Substance: FLUTICASONE PROPIONATE
     Indication: ASTHMA
     Dosage: UNK
     Route: 055
  2. SULBACILLIN [Suspect]
     Active Substance: AMPICILLIN SODIUM\SULBACTAM SODIUM
     Indication: THREATENED LABOUR
     Dosage: 6 G, 1D
     Route: 051
  3. RITODRINE [Suspect]
     Active Substance: RITODRINE
     Indication: THREATENED LABOUR
     Route: 065

REACTIONS (7)
  - Threatened labour [Unknown]
  - Polyhydramnios [Unknown]
  - Exposure during pregnancy [Unknown]
  - Uterine contractions abnormal [Unknown]
  - Abdominal distension [Unknown]
  - Labour pain [Unknown]
  - Nausea [Unknown]

NARRATIVE: CASE EVENT DATE: 201108
